FAERS Safety Report 18112258 (Version 2)
Quarter: 2020Q3

REPORT INFORMATION
  Report Type: Spontaneous
  Country: JP (occurrence: JP)
  Receive Date: 20200805
  Receipt Date: 20200807
  Transmission Date: 20201103
  Serious: Yes (Hospitalization)
  Sender: FDA-Public Use
  Company Number: JP-JNJFOC-20200801603

PATIENT

DRUGS (1)
  1. LOPEMIN [LOPERAMIDE HYDROCHLORIDE] [Suspect]
     Active Substance: LOPERAMIDE HYDROCHLORIDE
     Indication: PRODUCT USED FOR UNKNOWN INDICATION
     Dosage: LOPERAMIDE HYDROCHLORIDE:1MG
     Route: 048

REACTIONS (2)
  - Expired product administered [Unknown]
  - Hospitalisation [Unknown]
